FAERS Safety Report 21254365 (Version 2)
Quarter: 2022Q3

REPORT INFORMATION
  Report Type: Spontaneous
  Country: CH (occurrence: CH)
  Receive Date: 20220825
  Receipt Date: 20220909
  Transmission Date: 20221027
  Serious: Yes (Hospitalization, Other)
  Sender: FDA-Public Use
  Company Number: None

PATIENT
  Sex: Female

DRUGS (7)
  1. LUSPATERCEPT [Suspect]
     Active Substance: LUSPATERCEPT
     Indication: Refractory cytopenia with unilineage dysplasia
     Dosage: IN TOTAL
     Route: 058
     Dates: start: 20210802, end: 20210802
  2. LUSPATERCEPT [Suspect]
     Active Substance: LUSPATERCEPT
     Dosage: IN TOTAL
     Route: 058
     Dates: start: 20210824, end: 20210824
  3. LUSPATERCEPT [Suspect]
     Active Substance: LUSPATERCEPT
     Dosage: IN TOTAL
     Route: 058
     Dates: start: 20210914, end: 20210914
  4. LUSPATERCEPT [Suspect]
     Active Substance: LUSPATERCEPT
     Dosage: IN TOTAL
     Route: 058
     Dates: start: 20211005, end: 20211005
  5. LUSPATERCEPT [Suspect]
     Active Substance: LUSPATERCEPT
     Dosage: IN TOTAL
     Route: 058
     Dates: start: 20211105, end: 20211105
  6. PREDNISONE [Concomitant]
     Active Substance: PREDNISONE
     Indication: Product used for unknown indication
     Route: 065
  7. METHOTREXATE [Concomitant]
     Active Substance: METHOTREXATE
     Indication: Product used for unknown indication
     Route: 065

REACTIONS (9)
  - Headache [Recovered/Resolved]
  - Dysarthria [Recovered/Resolved]
  - Aphasia [Recovered/Resolved]
  - Nausea [Unknown]
  - Vomiting [Unknown]
  - Photophobia [Unknown]
  - Posterior reversible encephalopathy syndrome [Unknown]
  - Migraine [Unknown]
  - Tension headache [Unknown]

NARRATIVE: CASE EVENT DATE: 20211026
